FAERS Safety Report 19609472 (Version 1)
Quarter: 2021Q3

REPORT INFORMATION
  Report Type: Spontaneous
  Country: US (occurrence: US)
  Receive Date: 20210723
  Receipt Date: 20210723
  Transmission Date: 20211014
  Serious: Yes (Other)
  Sender: FDA-Public Use
  Company Number: None

PATIENT
  Age: 36 Year
  Sex: Male
  Weight: 72.57 kg

DRUGS (2)
  1. EPCLUSA [Suspect]
     Active Substance: SOFOSBUVIR\VELPATASVIR
  2. INFLECTRA [Suspect]
     Active Substance: INFLIXIMAB-DYYB

REACTIONS (1)
  - Vascular resistance systemic decreased [None]

NARRATIVE: CASE EVENT DATE: 20201221
